FAERS Safety Report 9011732 (Version 1)
Quarter: 2013Q1

REPORT INFORMATION
  Report Type: Spontaneous
  Country: US (occurrence: US)
  Receive Date: 20130114
  Receipt Date: 20130114
  Transmission Date: 20140127
  Serious: Yes (Other)
  Sender: FDA-Public Use
  Company Number: US-009507513-0907USA03599

PATIENT
  Age: 19 Year
  Sex: Male
  Weight: 172.37 kg

DRUGS (1)
  1. SINGULAIR [Suspect]
     Indication: ASTHMA
     Dosage: 10 MG, BID
     Route: 048
     Dates: start: 19950918, end: 20060822

REACTIONS (5)
  - Abnormal behaviour [Unknown]
  - Educational problem [Unknown]
  - Movement disorder [Unknown]
  - Weight increased [Unknown]
  - Overdose [Unknown]
